FAERS Safety Report 20268331 (Version 9)
Quarter: 2023Q1

REPORT INFORMATION
  Report Type: Report from Study
  Country: CN (occurrence: None)
  Receive Date: 20211231
  Receipt Date: 20230306
  Transmission Date: 20230417
  Serious: Yes (Hospitalization)
  Sender: FDA-Public Use
  Company Number: CN-ROCHE-2987129

PATIENT
  Age: 29 Year
  Sex: Female
  Weight: 70 kg

DRUGS (7)
  1. ATEZOLIZUMAB [Suspect]
     Active Substance: ATEZOLIZUMAB
     Indication: Triple negative breast cancer
     Dosage: DATE OF MOST RECENT DOSE 840 MG PRIOR TO  AE 18 NOV 2021?DATE OF MOST RECENT DOSE 840 MG OF PRIOR TO
     Route: 041
     Dates: start: 20210722
  2. PACLITAXEL [Suspect]
     Active Substance: PACLITAXEL
     Indication: Triple negative breast cancer
     Dosage: DATE OF MOST RECENT DOSE OF PACLITAXEL PRIOR TO SAE 11 NOV 2021 (140.8 MG)
     Route: 042
     Dates: start: 20210722
  3. CYCLOPHOSPHAMIDE [Suspect]
     Active Substance: CYCLOPHOSPHAMIDE
     Indication: Triple negative breast cancer
     Dosage: ON 18 NOV 2021, RECEIVED MOST RECENT DOSE OF CYCLOPHOSPHAMIDE PRIOR TO AE AND SAE ON 02 DEC 2021 (10
     Route: 042
     Dates: start: 20211118
  4. EPIRUBICIN [Suspect]
     Active Substance: EPIRUBICIN
     Indication: Triple negative breast cancer
     Dosage: ON 18 NOV 2021, MOST RECENT DOSE OF EPIRUBICIN PRIOR TO AE (161.1 MG). ON 02 DEC 2021, MOST RECENT D
     Route: 042
     Dates: start: 20211118
  5. FILGRASTIM [Suspect]
     Active Substance: FILGRASTIM
     Indication: Triple negative breast cancer
     Route: 058
     Dates: start: 20211119, end: 20211119
  6. FILGRASTIM [Suspect]
     Active Substance: FILGRASTIM
     Route: 058
     Dates: start: 20211203, end: 20211203
  7. FILGRASTIM [Suspect]
     Active Substance: FILGRASTIM
     Route: 058
     Dates: start: 20211225, end: 20211225

REACTIONS (1)
  - Cystitis noninfective [Recovered/Resolved]

NARRATIVE: CASE EVENT DATE: 20211120
